FAERS Safety Report 5726084-6 (Version None)
Quarter: 2008Q2

REPORT INFORMATION
  Report Type: 
  Country: None (occurrence: None)
  Receive Date: 20080501
  Receipt Date: 20080501
  Transmission Date: 20081010
  Serious: Yes (Disabling)
  Sender: FDA-Public Use
  Company Number: None

PATIENT
  Sex: Female
  Weight: 72.5755 kg

DRUGS (2)
  1. DIGITEK 0.125MG AMIDE [Suspect]
     Dosage: 1 TABLET DAILY PO
     Route: 048
     Dates: start: 20080421, end: 20080429
  2. DIGITEK 0.125MG AMIDE [Suspect]
     Dosage: 1 TABLET DAILY PO
     Route: 048
     Dates: start: 20080429, end: 20080429

REACTIONS (1)
  - CORONARY ARTERY DISEASE [None]
